FAERS Safety Report 23996730 (Version 1)
Quarter: 2024Q2

REPORT INFORMATION
  Report Type: Spontaneous
  Country: US (occurrence: US)
  Receive Date: 20240620
  Receipt Date: 20240620
  Transmission Date: 20240715
  Serious: No
  Sender: FDA-Public Use
  Company Number: US-GALDERMA-US2024000645

PATIENT

DRUGS (2)
  1. ORACEA [Suspect]
     Active Substance: DOXYCYCLINE
     Indication: Rosacea
     Dosage: 1 DOSAGE FORM
     Route: 065
  2. ORACEA [Suspect]
     Active Substance: DOXYCYCLINE
     Indication: Acne cystic

REACTIONS (2)
  - Intentional product use issue [Recovered/Resolved]
  - Drug effective for unapproved indication [Recovered/Resolved]
